FAERS Safety Report 23973397 (Version 1)
Quarter: 2024Q2

REPORT INFORMATION
  Report Type: Spontaneous
  Country: US (occurrence: US)
  Receive Date: 20240613
  Receipt Date: 20240613
  Transmission Date: 20240716
  Serious: Yes (Other)
  Sender: FDA-Public Use
  Company Number: US-MYLANLABS-2024M1053056

PATIENT
  Age: 38 Year
  Sex: Female

DRUGS (31)
  1. TAMOXIFEN [Suspect]
     Active Substance: TAMOXIFEN
     Indication: Mucinous breast carcinoma
     Dosage: UNK
     Route: 065
  2. TAMOXIFEN [Suspect]
     Active Substance: TAMOXIFEN
     Indication: Hormone receptor positive breast cancer
  3. TAMOXIFEN [Suspect]
     Active Substance: TAMOXIFEN
     Indication: HER2 negative breast cancer
  4. DOCETAXEL [Suspect]
     Active Substance: DOCETAXEL\DOCETAXEL ANHYDROUS
     Indication: Mucinous breast carcinoma
     Dosage: UNK
     Route: 065
  5. DOCETAXEL [Suspect]
     Active Substance: DOCETAXEL\DOCETAXEL ANHYDROUS
     Indication: Hormone receptor positive breast cancer
  6. DOCETAXEL [Suspect]
     Active Substance: DOCETAXEL\DOCETAXEL ANHYDROUS
     Indication: HER2 negative breast cancer
  7. ANASTROZOLE [Suspect]
     Active Substance: ANASTROZOLE
     Indication: Hormone receptor positive breast cancer
     Dosage: UNK
     Route: 065
  8. ANASTROZOLE [Suspect]
     Active Substance: ANASTROZOLE
     Indication: HER2 negative breast cancer
  9. ANASTROZOLE [Suspect]
     Active Substance: ANASTROZOLE
     Indication: Mucinous breast carcinoma
  10. CAPECITABINE [Suspect]
     Active Substance: CAPECITABINE
     Indication: Mucinous breast carcinoma
     Dosage: UNK
     Route: 065
  11. CAPECITABINE [Suspect]
     Active Substance: CAPECITABINE
     Indication: Hormone receptor positive breast cancer
     Dosage: UNK, DOSE DECREASED
     Route: 065
  12. CAPECITABINE [Suspect]
     Active Substance: CAPECITABINE
     Indication: HER2 negative breast cancer
  13. TRASTUZUMAB [Suspect]
     Active Substance: TRASTUZUMAB
     Indication: Hormone receptor positive breast cancer
     Dosage: UNK
     Route: 065
  14. TRASTUZUMAB [Suspect]
     Active Substance: TRASTUZUMAB
     Indication: Mucinous breast carcinoma
  15. TRASTUZUMAB [Suspect]
     Active Substance: TRASTUZUMAB
     Indication: HER2 negative breast cancer
  16. LAPATINIB [Suspect]
     Active Substance: LAPATINIB
     Indication: Mucinous breast carcinoma
     Dosage: UNK
     Route: 065
  17. LAPATINIB [Suspect]
     Active Substance: LAPATINIB
     Indication: Hormone receptor positive breast cancer
  18. LAPATINIB [Suspect]
     Active Substance: LAPATINIB
     Indication: HER2 negative breast cancer
  19. ADO-TRASTUZUMAB EMTANSINE [Suspect]
     Active Substance: ADO-TRASTUZUMAB EMTANSINE
     Indication: Mucinous breast carcinoma
     Dosage: UNK
     Route: 065
  20. ADO-TRASTUZUMAB EMTANSINE [Suspect]
     Active Substance: ADO-TRASTUZUMAB EMTANSINE
     Indication: Hormone receptor positive breast cancer
  21. ADO-TRASTUZUMAB EMTANSINE [Suspect]
     Active Substance: ADO-TRASTUZUMAB EMTANSINE
     Indication: HER2 negative breast cancer
  22. GOSERELIN [Suspect]
     Active Substance: GOSERELIN
     Indication: Mucinous breast carcinoma
     Dosage: UNK
     Route: 065
  23. GOSERELIN [Suspect]
     Active Substance: GOSERELIN
     Indication: Hormone receptor positive breast cancer
  24. GOSERELIN [Suspect]
     Active Substance: GOSERELIN
     Indication: HER2 negative breast cancer
  25. GEMCITABINE [Concomitant]
     Active Substance: GEMCITABINE
     Indication: Mucinous breast carcinoma
     Dosage: UNK
     Route: 065
  26. GEMCITABINE [Concomitant]
     Active Substance: GEMCITABINE
     Indication: Hormone receptor positive breast cancer
  27. GEMCITABINE [Concomitant]
     Active Substance: GEMCITABINE
     Indication: HER2 negative breast cancer
  28. NERATINIB [Concomitant]
     Active Substance: NERATINIB
     Indication: Hormone receptor positive breast cancer
     Dosage: UNK
     Route: 065
  29. NERATINIB [Concomitant]
     Active Substance: NERATINIB
     Indication: Mucinous breast carcinoma
  30. NERATINIB [Concomitant]
     Active Substance: NERATINIB
     Indication: HER2 negative breast cancer
  31. ZOMETA [Concomitant]
     Active Substance: ZOLEDRONIC ACID
     Indication: Supportive care
     Dosage: UNK
     Route: 065

REACTIONS (2)
  - Drug ineffective [Unknown]
  - Disease progression [Unknown]
